FAERS Safety Report 18172176 (Version 9)
Quarter: 2020Q4

REPORT INFORMATION
  Report Type: Spontaneous
  Country: CA (occurrence: CA)
  Receive Date: 20200819
  Receipt Date: 20201223
  Transmission Date: 20210113
  Serious: Yes (Hospitalization, Other)
  Sender: FDA-Public Use
  Company Number: CA-PFIZER INC-2020239250

PATIENT
  Age: 32 Year
  Sex: Male
  Weight: 74 kg

DRUGS (11)
  1. ZIRABEV [Suspect]
     Active Substance: BEVACIZUMAB-BVZR
     Dosage: 10 MG/KG EVERY 2 WEEKS
     Dates: start: 20200626, end: 20201030
  2. ZIRABEV [Suspect]
     Active Substance: BEVACIZUMAB-BVZR
     Dosage: 10 MG/KG, EVERY 2 WEEKS
     Route: 042
     Dates: start: 20200723
  3. ZIRABEV [Suspect]
     Active Substance: BEVACIZUMAB-BVZR
     Dosage: 740MG, EVERY 2 WEEKS
     Route: 042
     Dates: start: 20200915
  4. ZIRABEV [Suspect]
     Active Substance: BEVACIZUMAB-BVZR
     Dosage: 740MG, EVERY 2 WEEKS
     Route: 042
     Dates: start: 20200901
  5. ZIRABEV [Suspect]
     Active Substance: BEVACIZUMAB-BVZR
     Dosage: 740 MG, EVERY 2 WEEKS (ALSO REPORTED AS 10MG/KG, EVERY 2 WEEKS)
     Route: 042
     Dates: start: 20200626
  6. ZIRABEV [Suspect]
     Active Substance: BEVACIZUMAB-BVZR
     Dosage: 10 MG/KG, EVERY 2 WEEKS
     Route: 042
     Dates: start: 20200806
  7. ZIRABEV [Suspect]
     Active Substance: BEVACIZUMAB-BVZR
     Dosage: 740 MG, EVERY 2 WEEKS
     Route: 042
     Dates: start: 20200929, end: 20200929
  8. LONSURF [Concomitant]
     Active Substance: TIPIRACIL HYDROCHLORIDE\TRIFLURIDINE
     Dosage: UNK
  9. ZIRABEV [Suspect]
     Active Substance: BEVACIZUMAB-BVZR
     Dosage: 740 MG, EVERY 2 WEEKS (ALSO REPORTED AS 10MG/KG, EVERY 2 WEEKS)
     Route: 042
     Dates: start: 20200710
  10. ZIRABEV [Suspect]
     Active Substance: BEVACIZUMAB-BVZR
     Dosage: 10 MG/KG, EVERY 2 WEEKS
     Route: 042
     Dates: start: 20200723
  11. LOMUSTINE. [Concomitant]
     Active Substance: LOMUSTINE
     Dosage: UNK

REACTIONS (18)
  - Incorrect dose administered [Unknown]
  - Blood lactate dehydrogenase increased [Unknown]
  - Blood potassium increased [Unknown]
  - Gamma-glutamyltransferase increased [Unknown]
  - Immature granulocyte count increased [Unknown]
  - Monocyte count decreased [Unknown]
  - Pneumonia [Unknown]
  - Alanine aminotransferase increased [Unknown]
  - Condition aggravated [Not Recovered/Not Resolved]
  - Mean cell haemoglobin increased [Unknown]
  - Mean platelet volume decreased [Unknown]
  - Haematocrit decreased [Unknown]
  - Red blood cell count decreased [Unknown]
  - Blood pressure systolic increased [Recovered/Resolved]
  - Lymphocyte count decreased [Unknown]
  - White blood cell count decreased [Unknown]
  - Inappropriate schedule of product administration [Unknown]
  - Malaise [Not Recovered/Not Resolved]

NARRATIVE: CASE EVENT DATE: 20200710
